FAERS Safety Report 9878328 (Version 3)
Quarter: 2014Q1

REPORT INFORMATION
  Report Type: Spontaneous
  Country: US (occurrence: US)
  Receive Date: 20140206
  Receipt Date: 20140331
  Transmission Date: 20141002
  Serious: Yes (Hospitalization, Other)
  Sender: FDA-Public Use
  Company Number: US-BAYER-2014-017416

PATIENT
  Age: 23 Year
  Sex: Female
  Weight: 58.96 kg

DRUGS (5)
  1. MIRENA [Suspect]
     Indication: CONTRACEPTION
     Dosage: 20 MCG/24HR, CONT
     Route: 015
     Dates: start: 20110410, end: 20130423
  2. AZITHROMYCIN [Concomitant]
     Indication: OTITIS MEDIA
     Dosage: 250 MG, UNK
     Dates: start: 20121016
  3. KETOPROFEN [Concomitant]
     Dosage: 50 MG, UNK
     Route: 048
     Dates: start: 20121016
  4. VISTARIL [Concomitant]
     Route: 048
  5. VILAZODONE [Concomitant]
     Route: 048

REACTIONS (11)
  - Uterine perforation [None]
  - Medical device pain [None]
  - Device difficult to use [None]
  - Injury [None]
  - Pain [None]
  - Emotional distress [None]
  - Uterine injury [None]
  - Depression [None]
  - Anxiety [None]
  - Emotional distress [None]
  - Device issue [None]
